FAERS Safety Report 5123781-0 (Version None)
Quarter: 2006Q3

REPORT INFORMATION
  Report Type: 
  Country: None (occurrence: None)
  Receive Date: 20060811
  Receipt Date: 20060424
  Transmission Date: 20061208
  Serious: No
  Sender: FDA-Public Use
  Company Number: 200613982US

PATIENT
  Sex: Female

DRUGS (2)
  1. APIDRA [Suspect]
     Dates: start: 20060101
  2. SYMLIN [Concomitant]

REACTIONS (3)
  - ARTHRALGIA [None]
  - PAIN IN EXTREMITY [None]
  - WEIGHT INCREASED [None]
